FAERS Safety Report 18542813 (Version 2)
Quarter: 2020Q4

REPORT INFORMATION
  Report Type: Report from Study
  Country: MX (occurrence: MX)
  Receive Date: 20201124
  Receipt Date: 20201208
  Transmission Date: 20210114
  Serious: Yes (Hospitalization, Other)
  Sender: FDA-Public Use
  Company Number: MX-SEATTLE GENETICS-2020SGN05216

PATIENT
  Age: 72 Year
  Sex: Male

DRUGS (1)
  1. BRENTUXIMAB VEDOTIN [Suspect]
     Active Substance: BRENTUXIMAB VEDOTIN
     Indication: HODGKIN^S DISEASE
     Dosage: 150 MILLIGRAM
     Route: 042
     Dates: start: 20200124, end: 20201202

REACTIONS (4)
  - Hodgkin^s disease [Unknown]
  - Product dose omission issue [Unknown]
  - Localised infection [Not Recovered/Not Resolved]
  - General physical health deterioration [Unknown]
